FAERS Safety Report 4318962-X (Version None)
Quarter: 2004Q1

REPORT INFORMATION
  Report Type: 
  Country: None (occurrence: None)
  Receive Date: 20040315
  Receipt Date: 20040310
  Transmission Date: 20041129
  Serious: Yes (Death, Hospitalization)
  Sender: FDA-Public Use
  Company Number: US-JNJFOC-20030801689

PATIENT
  Age: 39 Year
  Sex: Male
  Weight: 119.296 kg

DRUGS (16)
  1. REMICADE [Suspect]
     Indication: RHEUMATOID ARTHRITIS
     Dosage: 6 MG/KG, INTRAVENOUS
     Route: 042
     Dates: start: 20020101
  2. ACCUPRIL [Concomitant]
  3. PREDNISONE [Concomitant]
  4. VIOXX [Concomitant]
  5. METHOTREXATE [Concomitant]
  6. FOLIC ACID [Concomitant]
  7. ACETYLSALICYLIC ACID SRT [Concomitant]
  8. ZANAFLEX [Concomitant]
  9. PROTONIX [Concomitant]
  10. ACETAMINOPHEN AND CODEINE PHOSPHATE [Concomitant]
  11. ACETAMINOPHEN [Concomitant]
  12. HYDROTALCITE (HYDROTALCITE) [Concomitant]
  13. PROPACET (PROPACET) [Concomitant]
  14. TRAZADONE (TRAZADONE) [Concomitant]
  15. AZITHROMYCIN [Concomitant]
  16. SERTRALINE HCL [Concomitant]

REACTIONS (5)
  - HISTOPLASMOSIS [None]
  - RENAL FAILURE [None]
  - RESPIRATORY FAILURE [None]
  - SEPSIS [None]
  - SPLENOMEGALY [None]
